FAERS Safety Report 7238733-4 (Version None)
Quarter: 2011Q1

REPORT INFORMATION
  Report Type: 
  Country: None (occurrence: None)
  Receive Date: 20110113
  Receipt Date: 20110107
  Transmission Date: 20110831
  Serious: Yes (Hospitalization, Disabling)
  Sender: FDA-Public Use
  Company Number: 2008-188046-NL

PATIENT
  Age: 19 Year
  Sex: Female
  Weight: 92.9874 kg

DRUGS (4)
  1. POLYTRIM [Concomitant]
  2. ORTHO TRI-CYCLEN LO [Suspect]
     Indication: PRODUCT USED FOR UNKNOWN INDICATION
     Dosage: PO
     Route: 048
     Dates: start: 20050803, end: 20060712
  3. ORTHO TRI-CYCLEN LO [Suspect]
     Indication: PRODUCT USED FOR UNKNOWN INDICATION
     Dosage: PO
     Route: 048
     Dates: start: 20061201
  4. NUVARING [Suspect]
     Indication: CONTRACEPTION
     Dosage: VAG
     Route: 067
     Dates: start: 20060913, end: 20061201

REACTIONS (40)
  - CERVICAL DYSPLASIA [None]
  - LIGAMENT RUPTURE [None]
  - LIGAMENT INJURY [None]
  - PLEURITIC PAIN [None]
  - STRESS [None]
  - THROMBOPHLEBITIS SUPERFICIAL [None]
  - OEDEMA PERIPHERAL [None]
  - ABDOMINAL TENDERNESS [None]
  - PULMONARY EMBOLISM [None]
  - NORMOCHROMIC NORMOCYTIC ANAEMIA [None]
  - ANTITHROMBIN III DECREASED [None]
  - HIGH RISK PREGNANCY [None]
  - HEADACHE [None]
  - VISION BLURRED [None]
  - DEEP VEIN THROMBOSIS [None]
  - THROMBOSIS [None]
  - IRON DEFICIENCY [None]
  - SCIATICA [None]
  - PRESYNCOPE [None]
  - PAIN [None]
  - INJURY [None]
  - PROTHROMBIN TIME PROLONGED [None]
  - PALPITATIONS [None]
  - DYSPNOEA [None]
  - DRUG EXPOSURE BEFORE PREGNANCY [None]
  - TRAUMATIC BRAIN INJURY [None]
  - FOLLICULITIS [None]
  - ABORTION [None]
  - OVARIAN CYST [None]
  - JOINT SPRAIN [None]
  - PUNCTURE SITE HAEMORRHAGE [None]
  - PLATELET COUNT INCREASED [None]
  - LIMB INJURY [None]
  - CYSTITIS HAEMORRHAGIC [None]
  - COMPLICATION OF PREGNANCY [None]
  - VENOUS RECANALISATION [None]
  - MUSCLE STRAIN [None]
  - FALL [None]
  - VERTIGO [None]
  - PREGNANCY [None]
